FAERS Safety Report 4874774-X (Version None)
Quarter: 2006Q1

REPORT INFORMATION
  Report Type: 
  Country: None (occurrence: None)
  Receive Date: 20060109
  Receipt Date: 20051228
  Transmission Date: 20060701
  Serious: Yes (Hospitalization)
  Sender: FDA-Public Use
  Company Number: NL-SOLVAY-00206000079

PATIENT
  Age: 35 Year
  Sex: Female

DRUGS (7)
  1. PROGESTAN [Suspect]
     Indication: IN VITRO FERTILISATION
     Dosage: DAILY DOSE:  UNKNOWN
     Route: 065
  2. HUMEGON [Suspect]
     Indication: IN VITRO FERTILISATION
     Dosage: DAILY DOSE:  UNKNOWN
     Route: 040
  3. PREGNYL [Suspect]
     Indication: IN VITRO FERTILISATION
     Dosage: DAILY DOSE:  UNKNOWN
     Route: 040
  4. PROFASI HP [Suspect]
     Indication: IN VITRO FERTILISATION
     Dosage: DAILY DOSE:  UNKNOWN
     Route: 065
  5. DECAPEPTYL [Suspect]
     Indication: IN VITRO FERTILISATION
     Dosage: DAILY DOSE:  UNKNOWN
     Route: 065
  6. METRODIN [Suspect]
     Indication: IN VITRO FERTILISATION
     Dosage: DAILY DOSE:  UNKNOWN
     Route: 065
  7. MENOGON [Suspect]
     Indication: IN VITRO FERTILISATION
     Dosage: DAILY DOSE:  UNKNOWN
     Route: 065

REACTIONS (5)
  - FIBROMYALGIA [None]
  - MOBILITY DECREASED [None]
  - OSTEOARTHRITIS [None]
  - PELVIC PAIN [None]
  - SPINAL FRACTURE [None]
